FAERS Safety Report 19410215 (Version 5)
Quarter: 2022Q1

REPORT INFORMATION
  Report Type: Report from Study
  Country: US (occurrence: US)
  Receive Date: 20210614
  Receipt Date: 20220118
  Transmission Date: 20220423
  Serious: Yes (Hospitalization)
  Sender: FDA-Public Use
  Company Number: NVSC2021US133386

PATIENT
  Age: 73 Year
  Sex: Female

DRUGS (3)
  1. ENTRESTO [Suspect]
     Active Substance: SACUBITRIL\VALSARTAN
     Indication: Congestive cardiomyopathy
     Dosage: 200 MG, BID (97/103 MG)
     Route: 048
  2. ENTRESTO [Suspect]
     Active Substance: SACUBITRIL\VALSARTAN
     Dosage: 50 MG, BID (24/26 MG
     Route: 048
     Dates: start: 20210121
  3. ENTRESTO [Suspect]
     Active Substance: SACUBITRIL\VALSARTAN
     Dosage: 100 MG, (49/51 MG)
     Route: 048
     Dates: start: 202109

REACTIONS (8)
  - COVID-19 [Unknown]
  - Nephrolithiasis [Unknown]
  - Dehydration [Recovered/Resolved]
  - Renal disorder [Recovered/Resolved]
  - Diarrhoea [Recovered/Resolved]
  - Peripheral swelling [Unknown]
  - Decreased appetite [Unknown]
  - Product use in unapproved indication [Unknown]

NARRATIVE: CASE EVENT DATE: 20210901
